FAERS Safety Report 6368966-0 (Version None)
Quarter: 2009Q3

REPORT INFORMATION
  Report Type: 
  Country: None (occurrence: None)
  Receive Date: 20090922
  Receipt Date: 20090911
  Transmission Date: 20100115
  Serious: Yes (Other)
  Sender: FDA-Public Use
  Company Number: DE-ELI_LILLY_AND_COMPANY-DE200909002790

PATIENT
  Age: 31 Year
  Sex: Female

DRUGS (2)
  1. BYETTA [Suspect]
     Indication: TYPE 2 DIABETES MELLITUS
     Dosage: 10 UG, UNKNOWN
     Route: 058
  2. GLIMEPIRIDE [Concomitant]
     Dosage: 2 MG, UNKNOWN
     Route: 065

REACTIONS (1)
  - GRAND MAL CONVULSION [None]
